FAERS Safety Report 7304934-X (Version None)
Quarter: 2011Q1

REPORT INFORMATION
  Report Type: 
  Country: None (occurrence: None)
  Receive Date: 20110222
  Receipt Date: 20100907
  Transmission Date: 20110831
  Serious: No
  Sender: FDA-Public Use
  Company Number: US-MYLANLABS-2010S1013647

PATIENT
  Age: 16 Year
  Sex: Female

DRUGS (4)
  1. AMNESTEEM [Suspect]
  2. AMNESTEEM [Suspect]
     Dates: start: 20100122
  3. CLARAVIS [Suspect]
  4. CLARAVIS [Suspect]

REACTIONS (1)
  - PREGNANCY TEST FALSE POSITIVE [None]
